FAERS Safety Report 10808033 (Version 1)
Quarter: 2015Q1

REPORT INFORMATION
  Report Type: Report from Study
  Country: US (occurrence: US)
  Receive Date: 20150217
  Receipt Date: 20150217
  Transmission Date: 20150721
  Serious: No
  Sender: FDA-Public Use
  Company Number: US-ABBVIE-14K-163-1261422-00

PATIENT
  Age: 26 Year
  Sex: Male

DRUGS (6)
  1. LOTEMAX [Suspect]
     Active Substance: LOTEPREDNOL ETABONATE
     Indication: EPISCLERITIS
     Dosage: TAPER, IN LEFT EYE, ISSUE RESOLVED IN 2-3 DAYS
     Dates: start: 201406, end: 201406
  2. DUREZOL [Suspect]
     Active Substance: DIFLUPREDNATE
     Indication: PRODUCT USED FOR UNKNOWN INDICATION
     Dosage: IN RIGHT EYE, DOSE DECREASED
     Dates: start: 20140706, end: 20140707
  3. HUMIRA [Suspect]
     Active Substance: ADALIMUMAB
     Indication: BEHCET^S SYNDROME
     Dates: start: 201303
  4. LOTEMAX [Suspect]
     Active Substance: LOTEPREDNOL ETABONATE
     Indication: UVEITIS
     Dosage: TAPER, IN RIGHT EYE
     Dates: start: 20140702, end: 20140707
  5. DUREZOL [Suspect]
     Active Substance: DIFLUPREDNATE
     Dates: start: 20140707, end: 20140710
  6. DUREZOL [Suspect]
     Active Substance: DIFLUPREDNATE
     Dates: start: 20140710

REACTIONS (10)
  - Mydriasis [Not Recovered/Not Resolved]
  - Drug resistance [Unknown]
  - Asthenopia [Unknown]
  - Behcet^s syndrome [Unknown]
  - Behcet^s syndrome [Unknown]
  - Stress [Unknown]
  - Injection site irritation [Unknown]
  - Vision blurred [Not Recovered/Not Resolved]
  - Injection site pain [Not Recovered/Not Resolved]
  - Episcleritis [Unknown]

NARRATIVE: CASE EVENT DATE: 201303
